FAERS Safety Report 17699546 (Version 1)
Quarter: 2020Q2

REPORT INFORMATION
  Report Type: Spontaneous
  Country: NZ (occurrence: NZ)
  Receive Date: 20200423
  Receipt Date: 20200423
  Transmission Date: 20200714
  Serious: Yes (Death)
  Sender: FDA-Public Use
  Company Number: NZ-CELGENEUS-NZL-20200407229

PATIENT
  Sex: Male

DRUGS (1)
  1. LENALIDOMIDE [Suspect]
     Active Substance: LENALIDOMIDE
     Indication: PLASMA CELL MYELOMA
     Dosage: FIRST DISPENSE APPROVED: 25/JAN/2016?25MG DAILY (D1-D21)?LAST DISPENSE APPROVED: 02/EP/2019?25MG DAI
     Route: 048

REACTIONS (1)
  - Death [Fatal]
